FAERS Safety Report 9564951 (Version 1)
Quarter: 2013Q3

REPORT INFORMATION
  Report Type: Spontaneous
  Country: ES (occurrence: ES)
  Receive Date: 20130930
  Receipt Date: 20130930
  Transmission Date: 20140515
  Serious: Yes (Other)
  Sender: FDA-Public Use
  Company Number: ES-PFIZER INC-2013276505

PATIENT
  Sex: Male

DRUGS (2)
  1. HUMATIN [Suspect]
     Indication: HEPATIC CIRRHOSIS
     Dosage: UNK
     Route: 048
     Dates: start: 201307, end: 20130706
  2. HUMATIN [Concomitant]
     Indication: HEPATIC CIRRHOSIS
     Route: 048

REACTIONS (2)
  - Incorrect dose administered [Recovered/Resolved]
  - Hepatic encephalopathy [Recovered/Resolved]
